FAERS Safety Report 25630906 (Version 1)
Quarter: 2025Q3

REPORT INFORMATION
  Report Type: Spontaneous
  Country: US (occurrence: US)
  Receive Date: 20250801
  Receipt Date: 20250801
  Transmission Date: 20251020
  Serious: Yes (Hospitalization, Other)
  Sender: PHARMACOSMOS A/S
  Company Number: US-NEBO-701950

PATIENT
  Age: 53 Year
  Sex: Male

DRUGS (8)
  1. SYMBICORT [Concomitant]
     Active Substance: BUDESONIDE\FORMOTEROL FUMARATE DIHYDRATE
  2. CARAFATE [Concomitant]
     Active Substance: SUCRALFATE
     Indication: Iron deficiency anaemia
  3. ALBUTEROL [Concomitant]
     Active Substance: ALBUTEROL
  4. BUPRENORPHINE [Concomitant]
     Active Substance: BUPRENORPHINE
  5. MUCINEX [Concomitant]
     Active Substance: GUAIFENESIN
  6. ROXICODONE [Concomitant]
     Active Substance: OXYCODONE HYDROCHLORIDE
  7. PROTONIX [Concomitant]
     Active Substance: PANTOPRAZOLE SODIUM
  8. MONOFERRIC [Suspect]
     Active Substance: FERRIC DERISOMALTOSE
     Indication: Iron deficiency anaemia
     Dates: start: 20231108, end: 20231108

REACTIONS (1)
  - Anaphylactic reaction [Unknown]

NARRATIVE: CASE EVENT DATE: 20231108
